FAERS Safety Report 20491369 (Version 22)
Quarter: 2023Q4

REPORT INFORMATION
  Report Type: Report from Study
  Country: CO (occurrence: CO)
  Receive Date: 20220218
  Receipt Date: 20231205
  Transmission Date: 20240110
  Serious: Yes (Hospitalization, Other)
  Sender: FDA-Public Use
  Company Number: CO-TAKEDA-CO201945632

PATIENT
  Age: 17 Year
  Sex: Male
  Weight: 46 kg

DRUGS (4)
  1. IDURSULFASE [Suspect]
     Active Substance: IDURSULFASE
     Indication: Mucopolysaccharidosis II
     Dosage: 8 MILLIGRAM, 1/WEEK
     Route: 042
     Dates: start: 20110101
  2. IDURSULFASE [Suspect]
     Active Substance: IDURSULFASE
     Dosage: 24 MILLIGRAM, Q4HR
     Route: 042
  3. IDURSULFASE [Suspect]
     Active Substance: IDURSULFASE
     Dosage: 23 MILLIGRAM, 1/WEEK
     Route: 042
  4. IDURSULFASE [Suspect]
     Active Substance: IDURSULFASE
     Dosage: 24 MILLIGRAM, 1/WEEK
     Route: 042

REACTIONS (17)
  - Haematochezia [Unknown]
  - Apnoea [Recovering/Resolving]
  - Dyspnoea [Unknown]
  - Pyrexia [Not Recovered/Not Resolved]
  - Influenza like illness [Recovering/Resolving]
  - Nasal congestion [Recovering/Resolving]
  - Rhinorrhoea [Not Recovered/Not Resolved]
  - Weight decreased [Unknown]
  - Productive cough [Recovering/Resolving]
  - Malaise [Recovering/Resolving]
  - Influenza [Recovering/Resolving]
  - Treatment noncompliance [Unknown]
  - Dry mouth [Not Recovered/Not Resolved]
  - Lip dry [Not Recovered/Not Resolved]
  - Weight increased [Not Recovered/Not Resolved]
  - Product prescribing error [Not Recovered/Not Resolved]
  - Incorrect dose administered [Not Recovered/Not Resolved]

NARRATIVE: CASE EVENT DATE: 20191227
